FAERS Safety Report 6171853-4 (Version None)
Quarter: 2009Q2

REPORT INFORMATION
  Report Type: 
  Country: None (occurrence: None)
  Receive Date: 20090428
  Receipt Date: 20090428
  Transmission Date: 20091009
  Serious: No
  Sender: FDA-Public Use
  Company Number: None

PATIENT
  Age: 48 Year
  Sex: Male

DRUGS (2)
  1. AMOXICILLIN AND CLAVULANATE POTASSIUM [Suspect]
     Indication: CELLULITIS
     Dosage: 1 TAB BID PO
     Route: 048
     Dates: start: 20090421, end: 20090424
  2. AMOXICILLIN AND CLAVULANATE POTASSIUM [Suspect]
     Indication: INFECTED BITES
     Dosage: 1 TAB BID PO
     Route: 048
     Dates: start: 20090421, end: 20090424

REACTIONS (3)
  - PERIORBITAL OEDEMA [None]
  - PRURITUS [None]
  - URTICARIA [None]
